FAERS Safety Report 20662429 (Version 1)
Quarter: 2022Q2

REPORT INFORMATION
  Report Type: Report from Study
  Country: US (occurrence: US)
  Receive Date: 20220401
  Receipt Date: 20220401
  Transmission Date: 20220721
  Serious: Yes (Other)
  Sender: FDA-Public Use
  Company Number: US-JNJFOC-20220348429

PATIENT
  Sex: Male

DRUGS (2)
  1. TREMFYA [Suspect]
     Active Substance: GUSELKUMAB
     Indication: Psoriatic arthropathy
     Route: 058
     Dates: start: 202110
  2. TREMFYA [Suspect]
     Active Substance: GUSELKUMAB

REACTIONS (6)
  - Neuropathy peripheral [Unknown]
  - Dizziness [Unknown]
  - Eosinophilic oesophagitis [Unknown]
  - Fatigue [Unknown]
  - Heart rate abnormal [Unknown]
  - Illness [Unknown]
